FAERS Safety Report 9549665 (Version 1)
Quarter: 2013Q3

REPORT INFORMATION
  Report Type: Spontaneous
  Country: US (occurrence: US)
  Receive Date: 20130924
  Receipt Date: 20130924
  Transmission Date: 20140515
  Serious: No
  Sender: FDA-Public Use
  Company Number: US-009507513-1309USA005251

PATIENT
  Age: 22 Year
  Sex: Female

DRUGS (1)
  1. IMPLANON [Suspect]
     Indication: CONTRACEPTION
     Dosage: 1 ROD, FOR 3 YEARS
     Route: 059
     Dates: start: 20130118

REACTIONS (3)
  - Secretion discharge [Unknown]
  - Haemorrhage [Unknown]
  - Thrombosis [Unknown]
